FAERS Safety Report 6636475-7 (Version None)
Quarter: 2010Q1

REPORT INFORMATION
  Report Type: 
  Country: None (occurrence: None)
  Receive Date: 20100316
  Receipt Date: 20100304
  Transmission Date: 20100710
  Serious: Yes (Death, Life-Threatening, Hospitalization)
  Sender: FDA-Public Use
  Company Number: DE-PFIZER INC-2010010763

PATIENT
  Age: 65 Year
  Sex: Female
  Weight: 45 kg

DRUGS (14)
  1. ZYVOXID [Suspect]
     Indication: TRANSPLANT ABSCESS
     Dosage: 600 MG, 2X/DAY
     Route: 042
     Dates: start: 20091221, end: 20100114
  2. ZYVOXID [Suspect]
     Dosage: 600 MG, 2X/DAY
     Route: 048
     Dates: start: 20100115, end: 20100127
  3. PREDNISOLON [Concomitant]
     Dosage: 5 MG, 1X/DAY
  4. LEVOTHYROXINE [Concomitant]
     Dosage: 125 UG, 1X/DAY
  5. FOLSAN [Concomitant]
     Dosage: 5 MG, 1X/DAY
  6. FUROSEMID [Concomitant]
     Dosage: 40 MG, 1X/DAY
  7. GABAPENTIN [Concomitant]
     Dosage: 100 MG, 1X/DAY
  8. PANTOPRAZOL [Concomitant]
     Dosage: 40 MG, 1X/DAY
  9. SIMVASTATIN [Concomitant]
     Dosage: 40 MG, 1X/DAY
  10. VIGANTOLETTEN ^MERCK^ [Concomitant]
     Dosage: 500 MG, 1X/DAY
  11. GLIMEPIRIDE [Concomitant]
     Dosage: 1 MG, 1X/DAY
  12. BISOPROLOL [Concomitant]
     Dosage: 2.5 MG, 1X/DAY
  13. PHENPROCOUMON [Concomitant]
  14. PROGRAF [Concomitant]
     Dosage: 1 MG, 2X/DAY

REACTIONS (8)
  - BLOOD CHOLINESTERASE INCREASED [None]
  - BLOOD SODIUM INCREASED [None]
  - BLOOD UREA INCREASED [None]
  - C-REACTIVE PROTEIN INCREASED [None]
  - GAMMA-GLUTAMYLTRANSFERASE INCREASED [None]
  - LACTIC ACIDOSIS [None]
  - MULTI-ORGAN FAILURE [None]
  - PROTEIN TOTAL DECREASED [None]
